FAERS Safety Report 16313117 (Version 1)
Quarter: 2019Q2

REPORT INFORMATION
  Report Type: Spontaneous
  Country: ES (occurrence: ES)
  Receive Date: 20190515
  Receipt Date: 20190515
  Transmission Date: 20190711
  Serious: Yes (Other)
  Sender: FDA-Public Use
  Company Number: PHHY2019ES107028

PATIENT
  Sex: Male

DRUGS (3)
  1. CARDYL [Concomitant]
     Active Substance: ATORVASTATIN CALCIUM
     Indication: PRODUCT USED FOR UNKNOWN INDICATION
     Dosage: UNK
     Route: 065
  2. TAMSULOSIN HYDROCHLORIDE. [Suspect]
     Active Substance: TAMSULOSIN HYDROCHLORIDE
     Indication: BENIGN PROSTATIC HYPERPLASIA
     Dosage: 0.4 MG, UNK
     Route: 048
     Dates: start: 20170603, end: 20170915
  3. MICARDIS [Concomitant]
     Active Substance: TELMISARTAN
     Indication: PRODUCT USED FOR UNKNOWN INDICATION
     Dosage: UNK
     Route: 065

REACTIONS (9)
  - Somnolence [Unknown]
  - Prostatism [Unknown]
  - Ejaculation failure [Unknown]
  - Urine flow decreased [Unknown]
  - Pollakiuria [Recovered/Resolved]
  - Post micturition dribble [Recovered/Resolved]
  - Nocturia [Unknown]
  - Drug ineffective [Unknown]
  - Libido decreased [Recovering/Resolving]
